FAERS Safety Report 5140045-X (Version None)
Quarter: 2006Q4

REPORT INFORMATION
  Report Type: 
  Country: None (occurrence: None)
  Receive Date: 20061025
  Receipt Date: 20061025
  Transmission Date: 20070319
  Serious: Yes (Hospitalization)
  Sender: FDA-Public Use
  Company Number: None

PATIENT
  Age: 74 Year
  Sex: Male
  Weight: 58.9676 kg

DRUGS (2)
  1. TRAZODONE HCL [Suspect]
     Indication: AFFECTIVE DISORDER
     Dosage: 100 MG PO QHS
     Route: 048
  2. HYDROCHLOROTHIAZIDE [Suspect]
     Indication: HYPERTENSION
     Dosage: 25 MG PO Q DAILY
     Route: 048

REACTIONS (6)
  - ALCOHOL USE [None]
  - ALCOHOLISM [None]
  - ASTHENIA [None]
  - DECREASED APPETITE [None]
  - HYPONATRAEMIA [None]
  - HYPOVOLAEMIA [None]
